FAERS Safety Report 8924363 (Version 1)
Quarter: 2012Q4

REPORT INFORMATION
  Report Type: 
  Country: GB (occurrence: GB)
  Receive Date: 20121127
  Receipt Date: 20121127
  Transmission Date: 20130627
  Serious: Yes (Hospitalization, Other)
  Sender: FDA-Public Use
  Company Number: GB-AMGEN-GBRSP2012074625

PATIENT
  Age: 62 Year
  Sex: Male

DRUGS (4)
  1. FILGRASTIM [Suspect]
     Indication: ACUTE LEUKAEMIA
     Dosage: UNK
     Route: 065
     Dates: start: 20111202
  2. CYTARABINE [Suspect]
     Indication: ACUTE LEUKAEMIA
     Dosage: UNK
     Route: 065
     Dates: start: 20111202
  3. FLUDARA [Suspect]
     Indication: ACUTE LEUKAEMIA
     Dosage: UNK
     Route: 065
     Dates: start: 20111202
  4. IDARUBICIN [Suspect]
     Indication: ACUTE LEUKAEMIA
     Dosage: UNK
     Route: 065
     Dates: start: 20111202

REACTIONS (2)
  - Fungal infection [Recovered/Resolved]
  - Neutropenic sepsis [Recovered/Resolved]
